FAERS Safety Report 5760451-X (Version None)
Quarter: 2008Q2

REPORT INFORMATION
  Report Type: 
  Country: None (occurrence: None)
  Receive Date: 20080605
  Receipt Date: 20080527
  Transmission Date: 20081010
  Serious: Yes (Other)
  Sender: FDA-Public Use
  Company Number: US-PFIZER INC-2008045427

PATIENT
  Sex: Male
  Weight: 111.36 kg

DRUGS (7)
  1. GLIPIZIDE [Suspect]
     Indication: TYPE 2 DIABETES MELLITUS
  2. HYZAAR [Concomitant]
  3. AMLODIPINE [Concomitant]
  4. ATENOLOL [Concomitant]
  5. VYTORIN [Concomitant]
  6. NIASPAN [Concomitant]
  7. GLEEVEC [Concomitant]

REACTIONS (2)
  - BLOOD GLUCOSE INCREASED [None]
  - COLOSTOMY [None]
